FAERS Safety Report 9213576 (Version 3)
Quarter: 2013Q2

REPORT INFORMATION
  Report Type: Spontaneous
  Country: US (occurrence: US)
  Receive Date: 20130405
  Receipt Date: 20130626
  Transmission Date: 20140414
  Serious: Yes (Other)
  Sender: FDA-Public Use
  Company Number: US-PFIZER INC-2013107255

PATIENT
  Age: 45 Year
  Sex: Female
  Weight: 91 kg

DRUGS (6)
  1. LYRICA [Suspect]
     Indication: FIBROMYALGIA
     Dosage: 200 MG, 2X/DAY
     Route: 048
     Dates: start: 2009
  2. LYRICA [Suspect]
     Indication: RESTLESS LEGS SYNDROME
  3. LISINOPRIL [Concomitant]
     Indication: HYPERTENSION
     Dosage: 10 MG, 1X/DAY
  4. METFORMIN [Concomitant]
     Indication: DIABETES MELLITUS
     Dosage: 500 MG, 2X/DAY
     Dates: start: 2008
  5. GEMFIBROZIL [Concomitant]
     Indication: BLOOD CHOLESTEROL ABNORMAL
     Dosage: 600 MG, 2X/DAY
  6. SERTRALINE [Concomitant]
     Indication: DEPRESSION
     Dosage: 200 MG, 1X/DAY

REACTIONS (3)
  - Off label use [Not Recovered/Not Resolved]
  - Nerve compression [Recovered/Resolved]
  - Intervertebral disc disorder [Recovered/Resolved]
